FAERS Safety Report 5828591-4 (Version None)
Quarter: 2008Q3

REPORT INFORMATION
  Report Type: 
  Country: None (occurrence: None)
  Receive Date: 20080729
  Receipt Date: 20080729
  Transmission Date: 20090109
  Serious: Yes (Hospitalization)
  Sender: FDA-Public Use
  Company Number: None

PATIENT
  Sex: Male
  Weight: 68 kg

DRUGS (2)
  1. PEMETREXED [Suspect]
     Indication: PROSTATE CANCER
     Dosage: 500 MG/M2 Q 21 DAY IV
     Route: 042
     Dates: end: 20070711
  2. OXALIPLATIN [Suspect]
     Indication: PROSTATE CANCER
     Dosage: 12 MG/M2 Q 21 DAYS IV
     Route: 042
     Dates: end: 20070711

REACTIONS (7)
  - ANOREXIA [None]
  - ATRIAL TACHYCARDIA [None]
  - BRONCHITIS [None]
  - CHRONIC OBSTRUCTIVE PULMONARY DISEASE [None]
  - CONSTIPATION [None]
  - HYPERGLYCAEMIA [None]
  - SPINAL OSTEOARTHRITIS [None]
